FAERS Safety Report 16043851 (Version 1)
Quarter: 2019Q1

REPORT INFORMATION
  Report Type: Spontaneous
  Country: US (occurrence: US)
  Receive Date: 20190306
  Receipt Date: 20190306
  Transmission Date: 20190418
  Serious: No
  Sender: FDA-Public Use
  Company Number: US-SA-2019SA013881

PATIENT
  Age: 72 Year
  Sex: Female

DRUGS (2)
  1. ALIROCUMAB [Suspect]
     Active Substance: ALIROCUMAB
     Dosage: 75 UNK
     Route: 058
     Dates: start: 20190206
  2. ALIROCUMAB [Suspect]
     Active Substance: ALIROCUMAB
     Dosage: 75 MG, QOW
     Route: 058
     Dates: start: 20190110

REACTIONS (2)
  - Joint swelling [Unknown]
  - Finger deformity [Unknown]

NARRATIVE: CASE EVENT DATE: 20190227
